FAERS Safety Report 6167821-9 (Version None)
Quarter: 2009Q2

REPORT INFORMATION
  Report Type: 
  Country: None (occurrence: None)
  Receive Date: 20090427
  Receipt Date: 20090420
  Transmission Date: 20091009
  Serious: Yes (Other)
  Sender: FDA-Public Use
  Company Number: US-JNJFOC-20090405669

PATIENT
  Sex: Female
  Weight: 52.16 kg

DRUGS (4)
  1. TOPAMAX [Suspect]
     Indication: MIGRAINE PROPHYLAXIS
     Route: 048
  2. LIPITOR [Concomitant]
     Indication: BLOOD CHOLESTEROL INCREASED
     Route: 048
  3. DIOVAN HCT [Concomitant]
     Indication: HYPERTENSION
     Dosage: 180/3.65
     Route: 048
  4. REQUIP [Concomitant]
     Indication: RESTLESS LEGS SYNDROME
     Route: 048

REACTIONS (1)
  - RETINAL DEGENERATION [None]
